FAERS Safety Report 4303822-0 (Version None)
Quarter: 2004Q1

REPORT INFORMATION
  Report Type: 
  Country: None (occurrence: None)
  Receive Date: 20040224
  Receipt Date: 20040219
  Transmission Date: 20041129
  Serious: Yes (Death)
  Sender: FDA-Public Use
  Company Number: 04-02-0258

PATIENT
  Age: 88 Year
  Sex: Female

DRUGS (1)
  1. CLOZAPINE [Suspect]
     Indication: DEMENTIA ALZHEIMER'S TYPE
     Dosage: 25MG QD ORAL
     Route: 048
     Dates: start: 20021101, end: 20040101

REACTIONS (1)
  - PNEUMONIA [None]
